FAERS Safety Report 9605757 (Version 1)
Quarter: 2013Q4

REPORT INFORMATION
  Report Type: Spontaneous
  Country: US (occurrence: US)
  Receive Date: 20131008
  Receipt Date: 20131008
  Transmission Date: 20140711
  Serious: No
  Sender: FDA-Public Use
  Company Number: US-AMGEN-USASP2013041415

PATIENT
  Sex: Female

DRUGS (3)
  1. XGEVA [Suspect]
     Indication: PROPHYLAXIS
  2. HERCEPTIN [Concomitant]
  3. HYDROCHLOROTHIAZIDE [Concomitant]

REACTIONS (5)
  - Depressed mood [Unknown]
  - Speech disorder [Unknown]
  - Facial pain [Unknown]
  - Toothache [Unknown]
  - Discomfort [Unknown]
